FAERS Safety Report 18344812 (Version 2)
Quarter: 2020Q4

REPORT INFORMATION
  Report Type: Spontaneous
  Country: GB (occurrence: GB)
  Receive Date: 20201005
  Receipt Date: 20201016
  Transmission Date: 20210114
  Serious: Yes (Hospitalization)
  Sender: FDA-Public Use
  Company Number: GB-MYLANLABS-98P-167-0080649-00

PATIENT
  Age: 47 Year
  Sex: Male
  Weight: 74 kg

DRUGS (24)
  1. OFLOXACIN. [Suspect]
     Active Substance: OFLOXACIN
     Indication: ACQUIRED IMMUNODEFICIENCY SYNDROME
     Dosage: 400 MILLIGRAM, BID
     Route: 048
     Dates: start: 19970529, end: 19970602
  2. ZERIT [Suspect]
     Active Substance: STAVUDINE
     Dosage: 40 MILLIGRAM, BID
     Route: 065
     Dates: start: 19970605
  3. CLARITHROMYCIN. [Suspect]
     Active Substance: CLARITHROMYCIN
     Indication: TUBERCULOSIS
     Dosage: 500 MILLIGRAM, BID
     Route: 048
     Dates: start: 19970529
  4. EPIVIR [Suspect]
     Active Substance: LAMIVUDINE
     Indication: ACQUIRED IMMUNODEFICIENCY SYNDROME
     Dosage: 150 MILLIGRAM, BID
     Route: 065
     Dates: start: 19970304, end: 19970603
  5. TRIMETHOPRIM. [Suspect]
     Active Substance: TRIMETHOPRIM
     Dosage: 480 MILLIGRAM
     Route: 065
     Dates: start: 19970605
  6. PROTHIONAMIDE [Suspect]
     Active Substance: PROTIONAMIDE
     Indication: PRODUCT USED FOR UNKNOWN INDICATION
     Dosage: MILLIGRAM
     Route: 048
     Dates: start: 19970529, end: 19970530
  7. SULFAMETHOXAZOLE [Suspect]
     Active Substance: SULFAMETHOXAZOLE
     Indication: ACQUIRED IMMUNODEFICIENCY SYNDROME
     Dosage: 480 MILLIGRAM
     Route: 065
     Dates: start: 19970605
  8. SEPTRIN [Suspect]
     Active Substance: SULFAMETHOXAZOLE\TRIMETHOPRIM
     Indication: ACQUIRED IMMUNODEFICIENCY SYNDROME
     Dosage: UNK
     Route: 065
     Dates: start: 19970605
  9. ZERIT [Suspect]
     Active Substance: STAVUDINE
     Indication: ACQUIRED IMMUNODEFICIENCY SYNDROME
     Dosage: 40 MILLIGRAM
     Route: 065
     Dates: start: 19970304
  10. ZERIT [Suspect]
     Active Substance: STAVUDINE
     Dosage: 80 MILLIGRAM
     Route: 065
     Dates: start: 19970606
  11. ZERIT [Suspect]
     Active Substance: STAVUDINE
     Dosage: 40 MILLIGRAM, BID
     Route: 065
     Dates: start: 19970304, end: 19970603
  12. INVIRASE [Suspect]
     Active Substance: SAQUINAVIR MESYLATE
     Dosage: 600 MILLIGRAM, 0.33 PER DAY
     Route: 065
     Dates: start: 19970605
  13. SEPTRIN [Suspect]
     Active Substance: SULFAMETHOXAZOLE\TRIMETHOPRIM
     Dosage: UNK
     Route: 065
  14. STREPTOMYCIN [Suspect]
     Active Substance: STREPTOMYCIN SULFATE
     Indication: TUBERCULOSIS
     Dosage: UNK
     Route: 030
     Dates: start: 19970530, end: 19970602
  15. OFLOXACIN. [Suspect]
     Active Substance: OFLOXACIN
     Dosage: 800 MILLIGRAM
     Route: 048
     Dates: start: 19970529, end: 19970602
  16. INVIRASE [Suspect]
     Active Substance: SAQUINAVIR MESYLATE
     Indication: ACQUIRED IMMUNODEFICIENCY SYNDROME
     Dosage: 600 MILLIGRAM, 0.33 PER DAY
     Route: 065
     Dates: start: 19970304, end: 19970603
  17. TRIMETHOPRIM. [Suspect]
     Active Substance: TRIMETHOPRIM
     Indication: ACQUIRED IMMUNODEFICIENCY SYNDROME
     Dosage: 480 MILLIGRAM
     Route: 065
     Dates: start: 19970529
  18. KLACID TABLETS [Suspect]
     Active Substance: CLARITHROMYCIN
     Indication: TUBERCULOSIS
     Dosage: MILLIGRAM2X
     Route: 048
     Dates: start: 19970529
  19. ETHAMBUTOL [Suspect]
     Active Substance: ETHAMBUTOL HYDROCHLORIDE
     Indication: TUBERCULOSIS
     Dosage: GRAM
     Route: 048
     Dates: start: 19970530, end: 19970603
  20. EPIVIR [Suspect]
     Active Substance: LAMIVUDINE
     Dosage: 150 MILLIGRAM, BID
     Route: 065
     Dates: start: 19970605
  21. TRIMETHOPRIM. [Suspect]
     Active Substance: TRIMETHOPRIM
     Dosage: 480 MILLIGRAM
     Route: 065
     Dates: start: 19970603
  22. SULFAMETHOXAZOLE [Suspect]
     Active Substance: SULFAMETHOXAZOLE
     Dosage: 480 MILLIGRAM
     Route: 065
     Dates: start: 19970603
  23. SAQUINAVIR [Suspect]
     Active Substance: SAQUINAVIR
     Indication: ACQUIRED IMMUNODEFICIENCY SYNDROME
     Dosage: 600 MILLIGRAM
     Route: 065
     Dates: start: 19970304
  24. INVIRASE [Suspect]
     Active Substance: SAQUINAVIR MESYLATE
     Dosage: 600 MILLIGRAM, 0.33 PER DAY
     Route: 065
     Dates: start: 19970606

REACTIONS (6)
  - Hepatosplenomegaly [Unknown]
  - Pyrexia [Unknown]
  - Renal failure [Recovered/Resolved]
  - Cough [Unknown]
  - Malaise [Unknown]
  - Purpura [Recovering/Resolving]

NARRATIVE: CASE EVENT DATE: 19970502
